FAERS Safety Report 9159451 (Version 4)
Quarter: 2013Q2

REPORT INFORMATION
  Report Type: Spontaneous
  Country: GB (occurrence: GB)
  Receive Date: 20130313
  Receipt Date: 20130514
  Transmission Date: 20140414
  Serious: Yes (Hospitalization, Other)
  Sender: FDA-Public Use
  Company Number: PHFR2013GB001269

PATIENT
  Age: 29 Year
  Sex: Female

DRUGS (1)
  1. CLOZARIL [Suspect]
     Indication: SCHIZOPHRENIA
     Dosage: UNK
     Route: 048
     Dates: start: 20121030

REACTIONS (10)
  - Sepsis [Recovered/Resolved]
  - Infection [Recovered/Resolved]
  - Agranulocytosis [Recovered/Resolved]
  - White blood cell count decreased [Unknown]
  - Neutropenia [Recovered/Resolved]
  - White blood cell count increased [Unknown]
  - Neutrophil count increased [Unknown]
  - Platelet count increased [Unknown]
  - Pneumonia [Unknown]
  - Malaise [Unknown]
